FAERS Safety Report 7421867-9 (Version None)
Quarter: 2011Q2

REPORT INFORMATION
  Report Type: 
  Country: None (occurrence: None)
  Receive Date: 20110418
  Receipt Date: 20110415
  Transmission Date: 20111010
  Serious: Yes (Disabling, Other)
  Sender: FDA-Public Use
  Company Number: US-PFIZER INC-2011083569

PATIENT
  Sex: Female
  Weight: 45.351 kg

DRUGS (18)
  1. AZATHIOPRINE [Concomitant]
     Dosage: UNK
  2. CYCLOBENZAPRINE [Concomitant]
     Dosage: UNK
  3. KAPIDEX [Concomitant]
     Dosage: UNK
  4. CELEXA [Concomitant]
     Dosage: UNK
  5. LIALDA [Concomitant]
     Dosage: UNK
  6. LIDODERM [Concomitant]
     Dosage: UNK
  7. ZOLOFT [Suspect]
     Indication: DEPRESSION
     Dosage: 100 MG, 1X/DAY
     Route: 048
     Dates: start: 20050101
  8. ZOLOFT [Suspect]
     Dosage: 150 MG, 1X/DAY
     Route: 048
     Dates: end: 20110301
  9. SUCRALFATE [Concomitant]
     Dosage: UNK
  10. TRAMADOL [Concomitant]
     Dosage: UNK
  11. DIAZEPAM [Concomitant]
     Dosage: UNK
  12. STRATTERA [Concomitant]
     Dosage: UNK
  13. HUMIRA [Concomitant]
     Dosage: UNK
  14. OXYCODONE [Concomitant]
     Dosage: UNK
  15. ZOFRAN [Concomitant]
     Dosage: UNK
  16. PROMETHAZINE [Concomitant]
     Dosage: UNK
  17. AMBIEN [Concomitant]
     Dosage: UNK
  18. VOLTAREN [Concomitant]
     Dosage: UNK

REACTIONS (11)
  - DEPRESSION [None]
  - INTERVERTEBRAL DISC PROTRUSION [None]
  - GASTROOESOPHAGEAL REFLUX DISEASE [None]
  - RHEUMATOID ARTHRITIS [None]
  - RAYNAUD'S PHENOMENON [None]
  - SJOGREN'S SYNDROME [None]
  - OESOPHAGEAL ACHALASIA [None]
  - INFLAMMATION [None]
  - BARRETT'S OESOPHAGUS [None]
  - BLOOD CHOLESTEROL INCREASED [None]
  - HIATUS HERNIA [None]
